FAERS Safety Report 5968677-7 (Version None)
Quarter: 2008Q4

REPORT INFORMATION
  Report Type: 
  Country: None (occurrence: None)
  Receive Date: 20081121
  Receipt Date: 20081121
  Transmission Date: 20090506
  Serious: Yes (Hospitalization, Other)
  Sender: FDA-Public Use
  Company Number: None

PATIENT
  Sex: Female
  Weight: 59.4212 kg

DRUGS (1)
  1. CHANTIX [Suspect]
     Indication: SMOKING CESSATION THERAPY
     Dosage: 1MG QD PO MONTHS
     Route: 048
     Dates: start: 20080717, end: 20080902

REACTIONS (4)
  - INTENTIONAL SELF-INJURY [None]
  - JOINT INJURY [None]
  - OVERDOSE [None]
  - SUICIDE ATTEMPT [None]
